FAERS Safety Report 7527767-8 (Version None)
Quarter: 2011Q2

REPORT INFORMATION
  Report Type: 
  Country: None (occurrence: None)
  Receive Date: 20110527
  Receipt Date: 20110520
  Transmission Date: 20111010
  Serious: Yes (Death)
  Sender: FDA-Public Use
  Company Number: 2011-1630

PATIENT
  Age: 76 Year
  Sex: Female

DRUGS (1)
  1. SOMATULINE AS 120MG (SOMATULINE SR) (LANREOTIDE) (LANREOTIDE ACETATE) [Suspect]
     Indication: CARCINOID TUMOUR
     Dosage: 120MG (120 MG,1 IN 21 D),INTRAMUSCULAR
     Route: 030
     Dates: start: 20100104, end: 20110512

REACTIONS (5)
  - INAPPROPRIATE SCHEDULE OF DRUG ADMINISTRATION [None]
  - BEDRIDDEN [None]
  - CARCINOID TUMOUR [None]
  - GENERAL PHYSICAL HEALTH DETERIORATION [None]
  - NEOPLASM PROGRESSION [None]
